FAERS Safety Report 26059438 (Version 3)
Quarter: 2025Q4

REPORT INFORMATION
  Report Type: Report from Study
  Country: CA (occurrence: CA)
  Receive Date: 20251118
  Receipt Date: 20251208
  Transmission Date: 20260119
  Serious: Yes (Other)
  Sender: JOHNSON AND JOHNSON
  Company Number: CA-JNJFOC-20250722210

PATIENT
  Age: 50 Year
  Sex: Female
  Weight: 100 kg

DRUGS (2)
  1. REMICADE [Suspect]
     Active Substance: INFLIXIMAB
     Indication: Ankylosing spondylitis
     Route: 041
     Dates: start: 20170117
  2. REMICADE [Suspect]
     Active Substance: INFLIXIMAB
     Route: 041

REACTIONS (6)
  - Ankylosing spondylitis [Unknown]
  - Colitis ulcerative [Unknown]
  - Herpes zoster [Recovered/Resolved]
  - Illness [Unknown]
  - Lymphadenopathy [Unknown]
  - Off label use [Unknown]

NARRATIVE: CASE EVENT DATE: 20250101
